FAERS Safety Report 10914485 (Version 1)
Quarter: 2015Q1

REPORT INFORMATION
  Report Type: Spontaneous
  Country: US (occurrence: None)
  Receive Date: 20150311
  Receipt Date: 20150311
  Transmission Date: 20150721
  Serious: Yes (Disabling, Other)
  Sender: FDA-Public Use
  Company Number: TIR-04323

PATIENT
  Age: 40 Year
  Sex: Female
  Weight: 155.58 kg

DRUGS (1)
  1. TIROSINT [Suspect]
     Active Substance: LEVOTHYROXINE SODIUM
     Indication: THYROIDECTOMY
     Route: 048
     Dates: start: 201307, end: 2014

REACTIONS (3)
  - Blindness unilateral [None]
  - Mass [None]
  - Brain oedema [None]

NARRATIVE: CASE EVENT DATE: 201307
